FAERS Safety Report 6942862-X (Version None)
Quarter: 2010Q3

REPORT INFORMATION
  Report Type: 
  Country: None (occurrence: None)
  Receive Date: 20100826
  Receipt Date: 20100812
  Transmission Date: 20110219
  Serious: Yes (Death, Other)
  Sender: FDA-Public Use
  Company Number: GB-ELI_LILLY_AND_COMPANY-GB201005007547

PATIENT
  Age: 27 Year
  Sex: Male
  Weight: 55.329 kg

DRUGS (5)
  1. OLANZAPINE [Suspect]
     Indication: ANXIETY
     Dosage: 5 MG, 4/D
     Route: 065
  2. CITALOPRAM HYDROBROMIDE [Concomitant]
     Indication: DEPRESSION
     Dosage: 40 MG, UNK
     Route: 048
     Dates: start: 20070427
  3. DF118 [Concomitant]
     Dosage: 30 MG, 4/D
     Route: 065
     Dates: start: 20050614
  4. GABAPENTIN [Concomitant]
     Dosage: 300 MG, UNK
     Route: 048
     Dates: start: 20090612
  5. CANNABIS [Concomitant]
     Dosage: UNK, UNKNOWN
     Route: 065
     Dates: start: 20100410

REACTIONS (13)
  - AORTIC ARTERIOSCLEROSIS [None]
  - ARTERIOSCLEROSIS CORONARY ARTERY [None]
  - BLADDER HYPERTROPHY [None]
  - CELL DEATH [None]
  - CORONARY ARTERY STENOSIS [None]
  - HEPATIC STEATOSIS [None]
  - LEFT VENTRICULAR HYPERTROPHY [None]
  - OFF LABEL USE [None]
  - PANCREATIC DISORDER [None]
  - PULMONARY OEDEMA [None]
  - RETCHING [None]
  - SUDDEN CARDIAC DEATH [None]
  - VOMITING [None]
